FAERS Safety Report 20621431 (Version 1)
Quarter: 2022Q1

REPORT INFORMATION
  Report Type: Spontaneous
  Country: US (occurrence: US)
  Receive Date: 20220322
  Receipt Date: 20220322
  Transmission Date: 20220424
  Serious: No
  Sender: FDA-Public Use
  Company Number: US-NOVOPROD-888165

PATIENT
  Age: 42 Year
  Sex: Female

DRUGS (1)
  1. WEGOVY [Suspect]
     Active Substance: SEMAGLUTIDE
     Indication: Product used for unknown indication
     Dosage: 0.5 MG, QW
     Route: 058

REACTIONS (5)
  - Injection site pain [Recovered/Resolved]
  - Injection site bruising [Not Recovered/Not Resolved]
  - Injection site injury [Not Recovered/Not Resolved]
  - Device failure [Not Recovered/Not Resolved]
  - Drug dose titration not performed [Not Recovered/Not Resolved]

NARRATIVE: CASE EVENT DATE: 20220120
